FAERS Safety Report 17092231 (Version 1)
Quarter: 2019Q4

REPORT INFORMATION
  Report Type: Spontaneous
  Country: US (occurrence: US)
  Receive Date: 20191129
  Receipt Date: 20191129
  Transmission Date: 20200122
  Serious: No
  Sender: FDA-Public Use
  Company Number: US-UCBSA-2018007059

PATIENT

DRUGS (2)
  1. KEPPRA [Suspect]
     Active Substance: LEVETIRACETAM
     Indication: SEIZURE
  2. MYSOLINE [Suspect]
     Active Substance: PRIMIDONE
     Indication: SEIZURE

REACTIONS (3)
  - Unevaluable event [Unknown]
  - Fatigue [Unknown]
  - Seizure [Unknown]
